FAERS Safety Report 16212688 (Version 1)
Quarter: 2019Q2

REPORT INFORMATION
  Report Type: Spontaneous
  Country: US (occurrence: US)
  Receive Date: 20190418
  Receipt Date: 20190418
  Transmission Date: 20190711
  Serious: Yes (Other)
  Sender: FDA-Public Use
  Company Number: US-ASTELLAS-2018US037186

PATIENT
  Age: 54 Year
  Sex: Female

DRUGS (4)
  1. LEXISCAN [Suspect]
     Active Substance: REGADENOSON
     Indication: HYPERTENSION
  2. LEXISCAN [Suspect]
     Active Substance: REGADENOSON
     Indication: DIABETES MELLITUS
  3. LEXISCAN [Suspect]
     Active Substance: REGADENOSON
     Indication: SCAN MYOCARDIAL PERFUSION
     Dosage: 0.4 MG, ONCE, FOR MORE THAN 10 SECONDS
     Route: 042
     Dates: start: 20180702, end: 20180702
  4. LEXISCAN [Suspect]
     Active Substance: REGADENOSON
     Indication: ANGINA UNSTABLE

REACTIONS (3)
  - Incorrect product administration duration [Unknown]
  - Loss of consciousness [Recovered/Resolved]
  - Cardiac arrest [Recovered/Resolved]

NARRATIVE: CASE EVENT DATE: 20180702
